FAERS Safety Report 10697482 (Version 1)
Quarter: 2015Q1

REPORT INFORMATION
  Report Type: Spontaneous
  Country: US (occurrence: None)
  Receive Date: 20150107
  Receipt Date: 20150107
  Transmission Date: 20150721
  Serious: Yes (Other)
  Sender: FDA-Public Use
  Company Number: None

PATIENT
  Sex: Male

DRUGS (15)
  1. METFORMIN [Concomitant]
     Active Substance: METFORMIN HYDROCHLORIDE
     Dates: start: 20140908
  2. AVODART 0.5MG CAPSULES [Concomitant]
     Dates: start: 20140306
  3. CALCIUM + D3  LIQ  BONE [Concomitant]
  4. PREDNISONE 5MG TABLETS [Concomitant]
     Dates: start: 20140330
  5. XTANDI [Suspect]
     Active Substance: ENZALUTAMIDE
     Indication: PROSTATE CANCER
     Route: 048
     Dates: start: 20140128
  6. ASPRIIN CHW 81MG [Concomitant]
  7. ALLEGRA TAB 180MG [Concomitant]
  8. FLOMAX CAP 0.4MG [Concomitant]
  9. AMOXICILLIN. [Concomitant]
     Active Substance: AMOXICILLIN
     Dates: start: 20141223, end: 20141223
  10. CONTOUR NEXT TEST STRIPS [Concomitant]
     Dates: start: 20141216, end: 20150102
  11. LISINOPRIL POW [Concomitant]
  12. ALPHAGAN P SOL 0.15% [Concomitant]
  13. ATORVASTATIN 10MG TABLETS [Concomitant]
     Dates: start: 20140110
  14. ZYTIGA 250MG TABLETS [Concomitant]
  15. TRAVATAN Z DRG 0.004% [Concomitant]

REACTIONS (3)
  - Pain [None]
  - Blood glucose increased [None]
  - Fatigue [None]
